FAERS Safety Report 4578934-7 (Version None)
Quarter: 2005Q1

REPORT INFORMATION
  Report Type: 
  Country: None (occurrence: None)
  Receive Date: 20050211
  Receipt Date: 20050203
  Transmission Date: 20050727
  Serious: Yes (Hospitalization)
  Sender: FDA-Public Use
  Company Number: FR-MERCK-0502USA00430

PATIENT
  Age: 76 Year
  Sex: Male

DRUGS (5)
  1. ZOCOR [Suspect]
     Route: 048
     Dates: start: 19910615, end: 20040815
  2. PRAVASTATIN [Suspect]
     Route: 048
     Dates: start: 20040915, end: 20050105
  3. KARDEGIC [Suspect]
     Route: 048
     Dates: start: 19960101
  4. MONICOR [Suspect]
     Route: 048
     Dates: start: 19960101
  5. BISOPROLOL [Suspect]
     Route: 048
     Dates: start: 19960101, end: 20041215

REACTIONS (3)
  - DYSPNOEA AT REST [None]
  - PULMONARY FIBROSIS [None]
  - RESPIRATORY FAILURE [None]
